FAERS Safety Report 9457670 (Version 1)
Quarter: 2013Q3

REPORT INFORMATION
  Report Type: Spontaneous
  Country: AU (occurrence: None)
  Receive Date: 20130812
  Receipt Date: 20130812
  Transmission Date: 20140515
  Serious: Yes (Hospitalization)
  Sender: FDA-Public Use
  Company Number: AG-2012-1420

PATIENT
  Age: 81 Year
  Sex: Female
  Weight: 56 kg

DRUGS (12)
  1. CHLORAMBUCIL (CHLORAMBUCIL) (UNKNOWN) [Suspect]
     Indication: CHRONIC LYMPHOCYTIC LEUKAEMIA
     Dosage: DAY 1 AND DAY 15
     Route: 048
     Dates: start: 20120514, end: 20120612
  2. RITUXIMAB (MOAB C2B8 ANTI CD20, CHIMERIC) [Suspect]
     Indication: CHRONIC LYMPHOCYTIC LEUKAEMIA
     Dosage: NOT OTHERWISE SPECIFIED
     Route: 042
     Dates: start: 20120515, end: 20120612
  3. RABEPRAZOLE [Concomitant]
  4. CLOPIDOGREL [Concomitant]
  5. SIMVASTATIN [Concomitant]
  6. VITAMIN D AND ANALOGUES [Concomitant]
  7. CALCIUM [Concomitant]
  8. PANADOL [Concomitant]
  9. ZOLEDRONIC ACID [Concomitant]
  10. ALLOPURINOL [Concomitant]
  11. VALTREX [Concomitant]
  12. BACTRIM [Concomitant]

REACTIONS (3)
  - Chills [None]
  - Febrile neutropenia [None]
  - Arthralgia [None]
